FAERS Safety Report 13348925 (Version 27)
Quarter: 2019Q2

REPORT INFORMATION
  Report Type: Report from Study
  Country: CA (occurrence: CA)
  Receive Date: 20170320
  Receipt Date: 20190607
  Transmission Date: 20190711
  Serious: Yes (Hospitalization, Other)
  Sender: FDA-Public Use
  Company Number: CA-BRISTOL-MYERS SQUIBB COMPANY-BMS-2017-007134

PATIENT
  Age: 84 Year
  Sex: Female

DRUGS (3)
  1. ABATACEPT [Suspect]
     Active Substance: ABATACEPT
     Indication: RHEUMATOID ARTHRITIS
     Dosage: 125 MG, QWK
     Route: 058
     Dates: start: 20161202
  2. ABATACEPT [Suspect]
     Active Substance: ABATACEPT
     Indication: RHEUMATOID ARTHRITIS
     Dosage: 1250 MG, QWK
     Route: 042
     Dates: start: 20170125
  3. ABATACEPT [Suspect]
     Active Substance: ABATACEPT
     Indication: PRODUCT USED FOR UNKNOWN INDICATION
     Dosage: 125 MG/ML, QWK
     Route: 058
     Dates: start: 20170124

REACTIONS (40)
  - Limb injury [Unknown]
  - Chest discomfort [Unknown]
  - Arthralgia [Not Recovered/Not Resolved]
  - Arthropathy [Unknown]
  - Arthritis [Not Recovered/Not Resolved]
  - Oropharyngeal pain [Unknown]
  - Bronchitis [Recovering/Resolving]
  - Contusion [Unknown]
  - Gait disturbance [Not Recovered/Not Resolved]
  - Gastroenteritis [Recovered/Resolved]
  - Cyst [Unknown]
  - Diarrhoea [Unknown]
  - Cyst drainage [Recovered/Resolved]
  - Nasopharyngitis [Unknown]
  - Joint swelling [Not Recovered/Not Resolved]
  - Blood pressure increased [Unknown]
  - Fall [Unknown]
  - Spinal stenosis [Unknown]
  - Productive cough [Unknown]
  - Dyspnoea [Unknown]
  - Musculoskeletal pain [Unknown]
  - Gait inability [Unknown]
  - Back pain [Unknown]
  - Pain [Recovering/Resolving]
  - Fatigue [Unknown]
  - Ageusia [Recovering/Resolving]
  - Musculoskeletal discomfort [Unknown]
  - Nausea [Unknown]
  - Anxiety [Unknown]
  - Localised infection [Recovering/Resolving]
  - Muscular weakness [Unknown]
  - Procedural pain [Unknown]
  - Cyst [Recovering/Resolving]
  - Pain in extremity [Recovering/Resolving]
  - Tooth fracture [Recovered/Resolved]
  - Influenza [Unknown]
  - Gastroenteritis viral [Not Recovered/Not Resolved]
  - Peripheral swelling [Unknown]
  - Painful respiration [Unknown]
  - Joint effusion [Unknown]

NARRATIVE: CASE EVENT DATE: 20170121
